FAERS Safety Report 18580051 (Version 1)
Quarter: 2020Q4

REPORT INFORMATION
  Report Type: Spontaneous
  Country: US (occurrence: US)
  Receive Date: 20201204
  Receipt Date: 20201204
  Transmission Date: 20210114
  Serious: No
  Sender: FDA-Public Use
  Company Number: US-SOFGEN PHARMACEUTICALS, LLC-2096696

PATIENT
  Age: 59 Year
  Sex: Female
  Weight: 81.65 kg

DRUGS (4)
  1. PROGESTERONE. [Suspect]
     Active Substance: PROGESTERONE
     Indication: MENOPAUSE
     Route: 048
     Dates: start: 20200803, end: 20201103
  2. ESTRADIOL. [Concomitant]
     Active Substance: ESTRADIOL
     Dates: start: 20200803, end: 20201103
  3. HYDROXYZINE [Concomitant]
     Active Substance: HYDROXYZINE HYDROCHLORIDE
  4. WELLBUTRIN [Concomitant]
     Active Substance: BUPROPION HYDROCHLORIDE

REACTIONS (2)
  - Drug ineffective [Unknown]
  - Breast tenderness [Unknown]

NARRATIVE: CASE EVENT DATE: 20200803
